FAERS Safety Report 24868891 (Version 1)
Quarter: 2025Q1

REPORT INFORMATION
  Report Type: Spontaneous
  Country: US (occurrence: US)
  Receive Date: 20250121
  Receipt Date: 20250121
  Transmission Date: 20250408
  Serious: No
  Sender: EISAI
  Company Number: US-Eisai-EC-2024-180646

PATIENT
  Age: 23 Year
  Sex: Male

DRUGS (2)
  1. BANZEL [Suspect]
     Active Substance: RUFINAMIDE
     Indication: Epilepsy
     Route: 048
     Dates: end: 20241208
  2. BANZEL [Suspect]
     Active Substance: RUFINAMIDE
     Route: 048

REACTIONS (2)
  - Product supply issue [Recovered/Resolved]
  - Drug withdrawal convulsions [Recovered/Resolved]

NARRATIVE: CASE EVENT DATE: 20241208
